FAERS Safety Report 6305172-X (Version None)
Quarter: 2009Q3

REPORT INFORMATION
  Report Type: 
  Country: None (occurrence: None)
  Receive Date: 20090811
  Receipt Date: 20090729
  Transmission Date: 20100115
  Serious: Yes (Other)
  Sender: FDA-Public Use
  Company Number: JP-B.I. PHARMACEUTICALS,INC./RIDGEFIELD-2009-DE-05174GD

PATIENT

DRUGS (1)
  1. PRAMIPEXOLE DIHYDROCHLORIDE [Suspect]

REACTIONS (1)
  - INAPPROPRIATE ANTIDIURETIC HORMONE SECRETION [None]
